FAERS Safety Report 9168845 (Version 1)
Quarter: 2013Q1

REPORT INFORMATION
  Report Type: Spontaneous
  Country: US (occurrence: None)
  Receive Date: 20130314
  Receipt Date: 20130314
  Transmission Date: 20140127
  Serious: Yes (Death)
  Sender: FDA-Public Use
  Company Number: None

PATIENT
  Age: 28 Year
  Sex: Male
  Weight: 76 kg

DRUGS (31)
  1. FENTANYL [Suspect]
     Indication: ANALGESIC THERAPY
     Route: 042
     Dates: start: 20130126, end: 20130129
  2. MIDAZOLAM [Suspect]
     Indication: SEDATION
     Route: 042
     Dates: start: 20130129
  3. APAP [Concomitant]
  4. AMP/SULBACTAM [Concomitant]
  5. BROMOCRIPTINE [Concomitant]
  6. CEFAZOLIN [Concomitant]
  7. CEFEPIME [Concomitant]
  8. CHLORHEXIDINE [Concomitant]
  9. CISATRACURIUM [Concomitant]
  10. DOCUSATE [Concomitant]
  11. FENTANYL [Concomitant]
  12. HEPARIN [Concomitant]
  13. INSULIN REGULAR SLIDING SCALE [Concomitant]
  14. IOHEXOL (OMNIPAQUE 300) [Concomitant]
  15. LORAZEPAM [Concomitant]
  16. MAGNESIUM SULFATE [Concomitant]
  17. MANNITOL [Concomitant]
  18. MIDAXOLAM [Concomitant]
  19. NORMAL SALINE WITH KCL [Concomitant]
  20. PANTOPRAZOLE [Concomitant]
  21. PHENYTOIN [Concomitant]
  22. KCL [Concomitant]
  23. NEUTRAPHOS [Concomitant]
  24. PROPOFOL [Concomitant]
  25. PROPRANOLOL [Concomitant]
  26. SENNA [Concomitant]
  27. SODIUM CHLORIDE [Concomitant]
  28. SODIUM CHLORIDE 0.45% WITH KCL [Concomitant]
  29. TDAP [Concomitant]
  30. VANCOMYCIN [Concomitant]
  31. VASOPRESSIN [Concomitant]

REACTIONS (18)
  - Pyrexia [None]
  - Product contamination [None]
  - Fall [None]
  - Depressed level of consciousness [None]
  - Craniocerebral injury [None]
  - Fractured skull depressed [None]
  - Brain oedema [None]
  - Traumatic liver injury [None]
  - Haemothorax [None]
  - Rib fracture [None]
  - Pulmonary haemorrhage [None]
  - Diabetes insipidus [None]
  - Pneumonia [None]
  - Haemodynamic instability [None]
  - Respiratory disorder [None]
  - Brain injury [None]
  - Hypotension [None]
  - Cardiac arrest [None]
